FAERS Safety Report 9103927 (Version 3)
Quarter: 2013Q2

REPORT INFORMATION
  Report Type: Spontaneous
  Country: US (occurrence: US)
  Receive Date: 20130219
  Receipt Date: 20130418
  Transmission Date: 20140414
  Serious: No
  Sender: FDA-Public Use
  Company Number: US-PFIZER INC-2013060137

PATIENT
  Age: 35 Year
  Sex: Female

DRUGS (2)
  1. LEVOXYL [Suspect]
     Indication: HYPOTHYROIDISM
     Dosage: 150 UG, 1X/DAY
     Route: 048
  2. LEVOXYL [Suspect]
     Dosage: 200 UG, 1X/DAY
     Route: 048

REACTIONS (3)
  - Product quality issue [Unknown]
  - Product odour abnormal [Unknown]
  - Headache [Recovered/Resolved]
